FAERS Safety Report 8110422-3 (Version None)
Quarter: 2012Q1

REPORT INFORMATION
  Report Type: 
  Country: None (occurrence: None)
  Receive Date: 20120202
  Receipt Date: 20120126
  Transmission Date: 20120608
  Serious: Yes (Hospitalization)
  Sender: FDA-Public Use
  Company Number: FR-MERCK-1201FRA00095

PATIENT
  Age: 21 Year
  Sex: Male

DRUGS (2)
  1. PRIMAXIN [Suspect]
     Indication: INFECTIOUS PERITONITIS
     Route: 051
     Dates: start: 20110909, end: 20110915
  2. AZATHIOPRINE [Concomitant]
     Route: 048
     Dates: start: 20110601, end: 20110907

REACTIONS (2)
  - LEUKOPENIA [None]
  - NEUTROPHIL PERCENTAGE DECREASED [None]
